FAERS Safety Report 18950294 (Version 2)
Quarter: 2023Q1

REPORT INFORMATION
  Report Type: Spontaneous
  Country: US (occurrence: None)
  Receive Date: 20210228
  Receipt Date: 20230223
  Transmission Date: 20230417
  Serious: No
  Sender: FDA-Public Use
  Company Number: US-ROCHE-2719448

PATIENT
  Age: 56 Year
  Sex: Female
  Weight: 109.41 kg

DRUGS (4)
  1. XOLAIR [Suspect]
     Active Substance: OMALIZUMAB
     Indication: Asthma
     Dosage: 150 MG/ML,
     Route: 058
     Dates: start: 20200420, end: 20220120
  2. XOLAIR [Suspect]
     Active Substance: OMALIZUMAB
  3. XOLAIR [Suspect]
     Active Substance: OMALIZUMAB
     Indication: Idiopathic urticaria
     Route: 058
     Dates: start: 20201116
  4. XOLAIR [Suspect]
     Active Substance: OMALIZUMAB

REACTIONS (8)
  - Urticaria [Unknown]
  - Lip swelling [Unknown]
  - Swelling face [Unknown]
  - Chest discomfort [Unknown]
  - Vision blurred [Unknown]
  - Dysgeusia [Unknown]
  - Chest pain [Unknown]
  - Hypersensitivity [Recovered/Resolved]

NARRATIVE: CASE EVENT DATE: 20220131
